FAERS Safety Report 12550635 (Version 2)
Quarter: 2016Q3

REPORT INFORMATION
  Report Type: Report from Study
  Country: US (occurrence: US)
  Receive Date: 20160712
  Receipt Date: 20160719
  Transmission Date: 20161109
  Serious: Yes (Hospitalization)
  Sender: FDA-Public Use
  Company Number: US-VERTEX PHARMACEUTICALS-2016-004260

PATIENT
  Age: 17 Year
  Sex: Male

DRUGS (21)
  1. ORKAMBI [Suspect]
     Active Substance: IVACAFTOR\LUMACAFTOR
     Indication: CYSTIC FIBROSIS
     Dosage: 2 DF (400/250 MG), BID
     Route: 048
     Dates: start: 20160426
  2. ALBUTEROL SULFATE. [Concomitant]
     Active Substance: ALBUTEROL SULFATE
     Indication: WHEEZING
  3. SALINE [Concomitant]
     Active Substance: SODIUM CHLORIDE
     Dosage: TAKE 5 ML EVERY 4 WEEKS
     Dates: start: 20160113
  4. URSODIOL. [Concomitant]
     Active Substance: URSODIOL
     Dosage: 1 DF, BID
     Route: 048
     Dates: start: 20160204
  5. CREON [Concomitant]
     Active Substance: PANCRELIPASE AMYLASE\PANCRELIPASE LIPASE\PANCRELIPASE PROTEASE
     Dosage: 5 CAPS WITH MEAL AND 3 CAPS WITH SNACKS
     Dates: start: 20160204
  6. HEPARIN [Concomitant]
     Active Substance: HEPARIN SODIUM
     Dosage: 3ML EVERY 4 WEEKS
     Dates: start: 20160113
  7. ADVAIR HFA [Concomitant]
     Active Substance: FLUTICASONE PROPIONATE\SALMETEROL XINAFOATE
     Dosage: 1 INHALATION, BID, RINSE MOUTH AFTER USE
     Route: 055
     Dates: start: 20160204
  8. AZITHROMYCIN ANHYDROUS. [Concomitant]
     Active Substance: AZITHROMYCIN ANHYDROUS
     Dosage: 1 DF, MON,WED,FRI
     Route: 048
     Dates: start: 20160627
  9. LMX 4 PLUS [Concomitant]
     Dosage: APPLY TO PORT SITE 30 MIN PRIOR TO MONTHLY FLUSH
     Dates: start: 20160113
  10. PROAIR HFA [Concomitant]
     Active Substance: ALBUTEROL SULFATE
     Indication: WHEEZING
  11. ALBUTEROL SULFATE. [Concomitant]
     Active Substance: ALBUTEROL SULFATE
     Indication: COUGH
     Dosage: INHALE 1 VIAL EVERY 3-4 HOURS, PRN
     Route: 055
     Dates: start: 20160204
  12. CHOLECALCIFEROL [Concomitant]
     Active Substance: CHOLECALCIFEROL
     Dosage: 6000 UT, QD
     Route: 048
     Dates: start: 20160219
  13. PULMOZYME [Concomitant]
     Active Substance: DORNASE ALFA
     Dosage: INHALE ONE VIAL, QD
     Route: 055
  14. SODIUM CHLORIDE. [Concomitant]
     Active Substance: SODIUM CHLORIDE
     Dosage: INHALE 1 VIAL, BID
     Route: 055
     Dates: start: 20160204
  15. ALBUTEROL SULFATE. [Concomitant]
     Active Substance: ALBUTEROL SULFATE
     Indication: DYSPNOEA
  16. CIPROFLOXACIN. [Concomitant]
     Active Substance: CIPROFLOXACIN
     Dosage: UNK, BID
     Route: 048
  17. MEPHYTON [Concomitant]
     Active Substance: PHYTONADIONE
     Dosage: 1 DF, QD
     Route: 048
  18. NEXIUM [Concomitant]
     Active Substance: ESOMEPRAZOLE MAGNESIUM
     Dosage: 1 DF, BID
     Route: 048
  19. POLYETHYLENE GLYCOL 3350. [Concomitant]
     Active Substance: POLYETHYLENE GLYCOL 3350
     Indication: CONSTIPATION
     Dosage: 17 G, QD
     Route: 048
     Dates: start: 20160229
  20. PROAIR HFA [Concomitant]
     Active Substance: ALBUTEROL SULFATE
     Indication: COUGH
     Dosage: 2 PUFFS, BID, PROIR TO HYPERSAL AND EVERY 3-4 HOURS
     Route: 055
     Dates: start: 20160204
  21. MULTIVITAMIN [Concomitant]
     Active Substance: VITAMINS
     Dosage: 1 DF, QD
     Route: 048
     Dates: start: 20160204

REACTIONS (1)
  - Infective pulmonary exacerbation of cystic fibrosis [Recovering/Resolving]

NARRATIVE: CASE EVENT DATE: 20160602
